FAERS Safety Report 5714224-4 (Version None)
Quarter: 2008Q2

REPORT INFORMATION
  Report Type: 
  Country: None (occurrence: None)
  Receive Date: 20080423
  Receipt Date: 20070416
  Transmission Date: 20081010
  Serious: No
  Sender: FDA-Public Use
  Company Number: US-KINGPHARMUSA00001-K200700487

PATIENT

DRUGS (2)
  1. SKELAXIN [Suspect]
     Indication: MUSCULOSKELETAL DISCOMFORT
     Dosage: 800 MG, SINGLE
     Route: 048
     Dates: start: 20070413, end: 20070413
  2. IBUPROFEN [Concomitant]
     Indication: MUSCULOSKELETAL DISCOMFORT
     Route: 048

REACTIONS (6)
  - ANAPHYLACTOID REACTION [None]
  - BLISTER [None]
  - FEELING ABNORMAL [None]
  - PARAESTHESIA [None]
  - RASH ERYTHEMATOUS [None]
  - TREMOR [None]
